FAERS Safety Report 4955120-X (Version None)
Quarter: 2006Q1

REPORT INFORMATION
  Report Type: 
  Country: None (occurrence: None)
  Receive Date: 20060322
  Receipt Date: 20060303
  Transmission Date: 20060701
  Serious: Yes (Other)
  Sender: FDA-Public Use
  Company Number: US200603001112

PATIENT
  Age: 65 Year
  Sex: Male

DRUGS (3)
  1. PROZAC [Suspect]
     Indication: DEPRESSION
     Dosage: ORAL
     Route: 048
     Dates: end: 20060101
  2. XANAX /USA/ (ALPRAZOLAM) [Concomitant]
  3. OXYBUTYNIN [Concomitant]

REACTIONS (5)
  - DRUG INEFFECTIVE [None]
  - ENURESIS [None]
  - FATIGUE [None]
  - LETHARGY [None]
  - PROSTATE CANCER RECURRENT [None]
